FAERS Safety Report 9603595 (Version 2)
Quarter: 2014Q2

REPORT INFORMATION
  Report Type: Spontaneous
  Country: US (occurrence: US)
  Receive Date: 20131007
  Receipt Date: 20140416
  Transmission Date: 20141212
  Serious: Yes (Other)
  Sender: FDA-Public Use
  Company Number: US-PFIZER INC-2013282376

PATIENT
  Age: 50 Year
  Sex: Female
  Weight: 68.03 kg

DRUGS (5)
  1. EFFEXOR XR [Suspect]
     Indication: DEPRESSION
     Dosage: 150 MG, UNK
     Route: 048
     Dates: start: 2005
  2. EFFEXOR XR [Suspect]
     Dosage: 37.5 MG, UNK
     Dates: end: 201005
  3. VENLAFAXINE HCL [Suspect]
     Indication: DEPRESSION
     Dosage: UNK
  4. LAMICTAL [Suspect]
     Indication: DEPRESSION
     Dosage: UNK
  5. LAMICTAL [Suspect]
     Indication: AFFECTIVE DISORDER

REACTIONS (9)
  - Suicidal ideation [Unknown]
  - Feeling abnormal [Unknown]
  - Drug ineffective [Unknown]
  - Panic attack [Unknown]
  - Crying [Unknown]
  - Oral discomfort [Unknown]
  - Tremor [Unknown]
  - Depressed mood [Unknown]
  - Drug withdrawal syndrome [Unknown]
